FAERS Safety Report 5553715-6 (Version None)
Quarter: 2007Q4

REPORT INFORMATION
  Report Type: 
  Country: None (occurrence: None)
  Receive Date: 20071213
  Receipt Date: 20071205
  Transmission Date: 20080405
  Serious: Yes (Disabling, Other)
  Sender: FDA-Public Use
  Company Number: PHEH2007US14703

PATIENT
  Age: 68 Year
  Sex: Male
  Weight: 87.074 kg

DRUGS (2)
  1. EXJADE [Suspect]
     Indication: SERUM FERRITIN INCREASED
     Dosage: 2000 MG, QD
     Route: 048
     Dates: start: 20071023, end: 20071106
  2. LEUKINE [Concomitant]
     Indication: NEUTROPENIA
     Dosage: 500MCG 3XWK
     Route: 058
     Dates: start: 20070901

REACTIONS (4)
  - RETINAL DETACHMENT [None]
  - RETINAL OPERATION [None]
  - VISION BLURRED [None]
  - VISUAL DISTURBANCE [None]
